FAERS Safety Report 4416085-2 (Version None)
Quarter: 2004Q3

REPORT INFORMATION
  Report Type: 
  Country: None (occurrence: None)
  Receive Date: 20040730
  Receipt Date: 20040719
  Transmission Date: 20050211
  Serious: Yes (Other)
  Sender: FDA-Public Use
  Company Number: 2004034119

PATIENT
  Age: 47 Year
  Sex: Female
  Weight: 71.6683 kg

DRUGS (13)
  1. NEURONTIN [Suspect]
     Indication: NEUROPATHY
     Dosage: 1800 MG (600 MG, 3 IN 1 D), ORAL
     Route: 048
     Dates: start: 20031201
  2. FUROSEMIDE [Concomitant]
  3. METFORIN HYDROCHLORIDE (METFORMIN HYDROCHLORIDE) [Concomitant]
  4. PIOGLITAZONE HCL [Concomitant]
  5. GLIMEPIRIDE [Concomitant]
  6. ROFECOXIB [Concomitant]
  7. CETIRIZINE HCL [Concomitant]
  8. RAMIPRIL [Concomitant]
  9. ZOLPIDEM TARTRATE [Concomitant]
  10. AMITRIPTYLINE HCL [Concomitant]
  11. ACETAYLSALICYLIC ACID (ACETYLSALICYLIC ACID) [Concomitant]
  12. ULTRACET [Concomitant]
  13. ATORVASTATIN CALCIUM [Concomitant]

REACTIONS (2)
  - DEVICE FAILURE [None]
  - WEIGHT INCREASED [None]
